FAERS Safety Report 15863345 (Version 1)
Quarter: 2019Q1

REPORT INFORMATION
  Report Type: Spontaneous
  Country: US (occurrence: US)
  Receive Date: 20190124
  Receipt Date: 20190124
  Transmission Date: 20190417
  Serious: No
  Sender: FDA-Public Use
  Company Number: None

PATIENT
  Age: 81 Year
  Sex: Male
  Weight: 75.96 kg

DRUGS (14)
  1. FOLIC ACID. [Concomitant]
     Active Substance: FOLIC ACID
  2. PROTONIX [Concomitant]
     Active Substance: PANTOPRAZOLE SODIUM
  3. ZETIA [Concomitant]
     Active Substance: EZETIMIBE
  4. COREG [Concomitant]
     Active Substance: CARVEDILOL
  5. FERROUS SULFATE. [Concomitant]
     Active Substance: FERROUS SULFATE
  6. VIAGRA [Concomitant]
     Active Substance: SILDENAFIL CITRATE
  7. IRINOTECAN [Suspect]
     Active Substance: IRINOTECAN
     Indication: COLON CANCER
     Dosage: ?          OTHER FREQUENCY:EVERY 2 WEEKS;?
     Route: 041
     Dates: start: 20180823, end: 20190124
  8. AVASTIN [Concomitant]
     Active Substance: BEVACIZUMAB
  9. ALLOPURINOL. [Concomitant]
     Active Substance: ALLOPURINOL
  10. LIPITOR [Concomitant]
     Active Substance: ATORVASTATIN CALCIUM
  11. ELOCON CREAM [Concomitant]
  12. ADRUCIL [Concomitant]
     Active Substance: FLUOROURACIL
  13. ASPIRIN. [Concomitant]
     Active Substance: ASPIRIN
  14. POTASSIUM CL ER [Concomitant]
     Active Substance: POTASSIUM CHLORIDE

REACTIONS (1)
  - Disease progression [None]
